FAERS Safety Report 6541177-1 (Version None)
Quarter: 2010Q1

REPORT INFORMATION
  Report Type: 
  Country: None (occurrence: None)
  Receive Date: 20100118
  Receipt Date: 20100112
  Transmission Date: 20100710
  Serious: Yes (Hospitalization)
  Sender: FDA-Public Use
  Company Number: B0588322A

PATIENT
  Age: 45 Year
  Sex: Male

DRUGS (4)
  1. ALOPURINOL [Suspect]
     Dosage: 300MG PER DAY
     Route: 048
     Dates: start: 20090601, end: 20090622
  2. AUGMENTIN '125' [Suspect]
     Indication: ODYNOPHAGIA
     Route: 048
     Dates: start: 20090615, end: 20090622
  3. TORASEMIDE [Concomitant]
     Indication: HYPERTENSION
     Dosage: 10MG PER DAY
     Route: 065
     Dates: start: 20090401, end: 20090622
  4. ENALAPRIL [Concomitant]
     Indication: HYPERTENSION
     Dosage: 10MG PER DAY
     Route: 065
     Dates: start: 20090401, end: 20090622

REACTIONS (3)
  - COOMBS POSITIVE HAEMOLYTIC ANAEMIA [None]
  - DRUG HYPERSENSITIVITY [None]
  - STEVENS-JOHNSON SYNDROME [None]
